FAERS Safety Report 17374805 (Version 1)
Quarter: 2020Q1

REPORT INFORMATION
  Report Type: Spontaneous
  Country: US (occurrence: US)
  Receive Date: 20200205
  Receipt Date: 20200205
  Transmission Date: 20200409
  Serious: No
  Sender: FDA-Public Use
  Company Number: US-HTU-2017US017096

PATIENT
  Sex: Female

DRUGS (2)
  1. VALCHLOR [Suspect]
     Active Substance: MECHLORETHAMINE
     Indication: CUTANEOUS T-CELL LYMPHOMA
     Dosage: THIN FILM, QD
     Route: 061
     Dates: start: 20170318
  2. TRIAMCINOLON [Concomitant]

REACTIONS (4)
  - Paraesthesia [Unknown]
  - Dry skin [Not Recovered/Not Resolved]
  - Skin discolouration [Not Recovered/Not Resolved]
  - Burning sensation [Unknown]
